FAERS Safety Report 10622764 (Version 2)
Quarter: 2015Q1

REPORT INFORMATION
  Report Type: Report from Study
  Country: BR (occurrence: BR)
  Receive Date: 20141203
  Receipt Date: 20150220
  Transmission Date: 20150720
  Serious: Yes (Hospitalization, Other)
  Sender: FDA-Public Use
  Company Number: BR-ABBVIE-14K-020-1313634-00

PATIENT
  Sex: Female

DRUGS (1)
  1. HUMIRA [Suspect]
     Active Substance: ADALIMUMAB
     Indication: PSORIATIC ARTHROPATHY
     Route: 058
     Dates: start: 20130905

REACTIONS (7)
  - Arrhythmia [Unknown]
  - Pneumonia bacterial [Unknown]
  - Wound [Unknown]
  - Internal haemorrhage [Unknown]
  - Anxiety [Unknown]
  - Immunodeficiency [Unknown]
  - Diabetes mellitus [Unknown]
